FAERS Safety Report 6305434-6 (Version None)
Quarter: 2009Q3

REPORT INFORMATION
  Report Type: 
  Country: None (occurrence: None)
  Receive Date: 20090807
  Receipt Date: 20090722
  Transmission Date: 20100115
  Serious: Yes (Life-Threatening, Other)
  Sender: FDA-Public Use
  Company Number: DSA_40519_2009

PATIENT
  Sex: Male

DRUGS (3)
  1. BI-TILDIEM (BI-TILDIEM - DILTIAZEM HYDROCHLORIDE) (NOT SPECIFIED) [Suspect]
     Indication: DRUG USE FOR UNKNOWN INDICATION
     Dosage: (120 MG BID ORAL)
     Route: 048
     Dates: start: 19990101
  2. ZOCOR [Concomitant]
  3. KARDEGIC /00002703/ [Concomitant]

REACTIONS (4)
  - ANGINA PECTORIS [None]
  - ARTERIOSPASM CORONARY [None]
  - DRUG INEFFECTIVE [None]
  - MEDICATION RESIDUE [None]
